FAERS Safety Report 6411408-7 (Version None)
Quarter: 2009Q4

REPORT INFORMATION
  Report Type: 
  Country: None (occurrence: None)
  Receive Date: 20091023
  Receipt Date: 20091016
  Transmission Date: 20100525
  Serious: Yes (Death, Congenital Anomaly, Other)
  Sender: FDA-Public Use
  Company Number: TR-ELI_LILLY_AND_COMPANY-TR200910000976

PATIENT
  Sex: Female

DRUGS (8)
  1. HUMULIN 70/30 [Suspect]
     Dosage: 28 IU, EACH MORNING
     Route: 064
     Dates: end: 20091004
  2. HUMULIN 70/30 [Suspect]
     Dosage: 6 IU, EACH EVENING
     Route: 064
     Dates: end: 20091004
  3. ALFAMET [Concomitant]
     Indication: HYPERTENSION
     Dosage: UNK UNK, DAILY (1/D)
     Route: 064
  4. KARVEZIDE [Concomitant]
     Indication: HYPERTENSION
     Dosage: UNK, EACH MORNING
  5. ORAL ANTIDIABETICS [Concomitant]
     Indication: DIABETES MELLITUS
     Route: 048
  6. CIPRO [Concomitant]
     Indication: ANTIBIOTIC THERAPY
  7. SPASMOMEN [Concomitant]
  8. RENNIE [Concomitant]
     Indication: ABDOMINAL DISCOMFORT

REACTIONS (3)
  - DRUG EXPOSURE DURING PREGNANCY [None]
  - HEART DISEASE CONGENITAL [None]
  - STILLBIRTH [None]
